FAERS Safety Report 5972577-6 (Version None)
Quarter: 2008Q4

REPORT INFORMATION
  Report Type: 
  Country: None (occurrence: None)
  Receive Date: 20081201
  Receipt Date: 20081117
  Transmission Date: 20090506
  Serious: Yes (Hospitalization)
  Sender: FDA-Public Use
  Company Number: PHHY2008FR28513

PATIENT
  Sex: Female

DRUGS (3)
  1. COTAREG [Suspect]
     Dosage: UNK
     Dates: start: 20060101, end: 20080901
  2. OFLOXACIN [Concomitant]
     Indication: URINARY TRACT INFECTION
  3. DIURETICS [Concomitant]

REACTIONS (6)
  - DEHYDRATION [None]
  - DIZZINESS [None]
  - FALL [None]
  - HYPONATRAEMIA [None]
  - MALAISE [None]
  - URINARY TRACT INFECTION [None]
